FAERS Safety Report 21942796 (Version 4)
Quarter: 2023Q1

REPORT INFORMATION
  Report Type: Report from Study
  Country: US (occurrence: US)
  Receive Date: 20230202
  Receipt Date: 20230228
  Transmission Date: 20230417
  Serious: Yes (Hospitalization)
  Sender: FDA-Public Use
  Company Number: US-002147023-NVSC2023US016359

PATIENT
  Sex: Male

DRUGS (3)
  1. ENTRESTO [Suspect]
     Active Substance: SACUBITRIL\VALSARTAN
     Indication: Cardiac failure
     Dosage: 1 DOSAGE FORM, BID (24/26MG)
     Route: 065
     Dates: start: 20230113
  2. ENTRESTO [Suspect]
     Active Substance: SACUBITRIL\VALSARTAN
     Dosage: UNK UNK, QD (AT NIGHT)
     Route: 065
  3. ENTRESTO [Suspect]
     Active Substance: SACUBITRIL\VALSARTAN
     Dosage: UNK (MID DOSE OF ENTRESTO)
     Route: 065

REACTIONS (17)
  - Ventricular extrasystoles [Recovering/Resolving]
  - Cold sweat [Recovering/Resolving]
  - Dyspnoea [Recovering/Resolving]
  - Chest pain [Recovering/Resolving]
  - Dizziness [Recovering/Resolving]
  - Heart rate increased [Unknown]
  - Blood glucose increased [Not Recovered/Not Resolved]
  - Insomnia [Unknown]
  - Weight decreased [Recovering/Resolving]
  - Asthenia [Unknown]
  - Frequent bowel movements [Not Recovered/Not Resolved]
  - Dyspnoea exertional [Not Recovered/Not Resolved]
  - Abdominal distension [Unknown]
  - Fluid retention [Unknown]
  - Nocturia [Unknown]
  - Fatigue [Not Recovered/Not Resolved]
  - Inappropriate schedule of product administration [Unknown]
